FAERS Safety Report 4426772-8 (Version None)
Quarter: 2004Q3

REPORT INFORMATION
  Report Type: 
  Country: None (occurrence: None)
  Receive Date: 20040812
  Receipt Date: 20040812
  Transmission Date: 20050211
  Serious: Yes (Life-Threatening, Hospitalization)
  Sender: FDA-Public Use
  Company Number: None

PATIENT
  Age: 55 Year
  Sex: Female
  Weight: 57.1532 kg

DRUGS (1)
  1. CELEBREX [Suspect]
     Indication: SWELLING
     Dosage: 1 200MG  PER DAY  ORAL
     Route: 048
     Dates: start: 20040628, end: 20040706

REACTIONS (3)
  - HAEMATEMESIS [None]
  - HAEMORRHAGE [None]
  - SYNCOPE [None]
